FAERS Safety Report 17446197 (Version 1)
Quarter: 2020Q1

REPORT INFORMATION
  Report Type: Report from Study
  Country: DE (occurrence: DE)
  Receive Date: 20200221
  Receipt Date: 20200221
  Transmission Date: 20200409
  Serious: Yes (Death, Hospitalization)
  Sender: FDA-Public Use
  Company Number: PHHY2019DE052527

PATIENT
  Sex: Male
  Weight: 72 kg

DRUGS (4)
  1. SPIRIVA [Concomitant]
     Active Substance: TIOTROPIUM BROMIDE MONOHYDRATE
     Indication: CHRONIC OBSTRUCTIVE PULMONARY DISEASE
     Dosage: 18 UG, QD (HARD CAPSULES WITH POWDER FOR INHALATION)
     Route: 055
     Dates: start: 2008
  2. FORMOTEROL CT [Concomitant]
     Active Substance: FORMOTEROL
     Indication: CHRONIC OBSTRUCTIVE PULMONARY DISEASE
     Dosage: UNK UNK, QD
     Route: 055
     Dates: start: 2008
  3. MIFLONIDE BREEZHALER [Suspect]
     Active Substance: BUDESONIDE
     Indication: CHRONIC OBSTRUCTIVE PULMONARY DISEASE
     Dosage: 1 DF, QD
     Route: 055
     Dates: start: 2008
  4. BEROTEC N [Concomitant]
     Active Substance: FENOTEROL HYDROBROMIDE
     Indication: CHRONIC OBSTRUCTIVE PULMONARY DISEASE
     Dosage: AS NEEDED , QD (DOSING AEROSOL COMPRESSED GAS INHALATION, SOLUTION)
     Route: 055
     Dates: start: 2008

REACTIONS (2)
  - Death [Fatal]
  - Cor pulmonale chronic [Recovered/Resolved]

NARRATIVE: CASE EVENT DATE: 20181208
